FAERS Safety Report 5422798-6 (Version None)
Quarter: 2007Q3

REPORT INFORMATION
  Report Type: 
  Country: None (occurrence: None)
  Receive Date: 20070730
  Receipt Date: 20060725
  Transmission Date: 20080115
  Serious: Yes (Hospitalization)
  Sender: FDA-Public Use
  Company Number: 200612614BWH

PATIENT
  Age: 54 Year
  Sex: Female
  Weight: 70.7611 kg

DRUGS (6)
  1. AVELOX [Suspect]
     Indication: DRUG USE FOR UNKNOWN INDICATION
     Dosage: 400 MG, ONCE; ORAL
     Route: 048
     Dates: start: 20060418
  2. ATENOLOL [Concomitant]
  3. LIPITOR [Concomitant]
  4. NIASPAN [Concomitant]
  5. RANITIDINE [Concomitant]
  6. NASONEX [Concomitant]

REACTIONS (4)
  - ANGIOEDEMA [None]
  - PHOTOSENSITIVITY REACTION [None]
  - RASH [None]
  - SWELLING FACE [None]
